FAERS Safety Report 5020455-1 (Version None)
Quarter: 2006Q2

REPORT INFORMATION
  Report Type: 
  Country: None (occurrence: None)
  Receive Date: 20060602
  Receipt Date: 20060522
  Transmission Date: 20061013
  Serious: Yes (Hospitalization, Other)
  Sender: FDA-Public Use
  Company Number: HQWYE501323MAY06

PATIENT
  Age: 2 Year
  Sex: Female

DRUGS (2)
  1. ADVIL [Suspect]
     Indication: PYREXIA
     Dosage: 1 DOISE FOR 11 KG, 4 TIMES DAILY
     Route: 048
     Dates: start: 20060214, end: 20060216
  2. ACETAMINOPHEN [Suspect]
     Indication: PYREXIA
     Dates: start: 20060214, end: 20060216

REACTIONS (14)
  - APLASTIC ANAEMIA [None]
  - BLOOD CHLORIDE DECREASED [None]
  - BLOOD CREATININE DECREASED [None]
  - BLOOD PRESSURE DIASTOLIC DECREASED [None]
  - BLOOD SODIUM DECREASED [None]
  - CONDITION AGGRAVATED [None]
  - COUGH [None]
  - HEART RATE INCREASED [None]
  - HEPATITIS C [None]
  - LOBAR PNEUMONIA [None]
  - MICROCYTIC ANAEMIA [None]
  - MUCOSAL DISCOLOURATION [None]
  - PALLOR [None]
  - PLATELET COUNT INCREASED [None]
